FAERS Safety Report 7185368-8 (Version None)
Quarter: 2010Q4

REPORT INFORMATION
  Report Type: 
  Country: None (occurrence: None)
  Receive Date: 20101222
  Receipt Date: 20101214
  Transmission Date: 20110411
  Serious: Yes (Other)
  Sender: FDA-Public Use
  Company Number: US-PFIZER INC-2010138693

PATIENT
  Sex: Female

DRUGS (1)
  1. SUTENT [Suspect]
     Indication: METASTATIC RENAL CELL CARCINOMA
     Dosage: 25 MG, 1X/DAY, X 14 DAYS EVERY 21 DAYS
     Dates: start: 20101008, end: 20101201

REACTIONS (3)
  - HAEMOGLOBIN DECREASED [None]
  - HYPERTENSION [None]
  - RENAL FAILURE [None]
